FAERS Safety Report 5044143-0 (Version None)
Quarter: 2006Q3

REPORT INFORMATION
  Report Type: 
  Country: None (occurrence: None)
  Receive Date: 20060706
  Receipt Date: 20060626
  Transmission Date: 20061208
  Serious: Yes (Hospitalization, Other)
  Sender: FDA-Public Use
  Company Number: US-JNJFOC-20060505808

PATIENT
  Sex: Male
  Weight: 56.25 kg

DRUGS (12)
  1. REMICADE [Suspect]
     Route: 042
  2. REMICADE [Suspect]
     Route: 042
  3. REMICADE [Suspect]
     Indication: RHEUMATOID ARTHRITIS
     Route: 042
  4. ULTRAM [Concomitant]
     Indication: PAIN
     Dosage: DOSE IS ^50^
  5. PREDNISONE TAB [Concomitant]
     Indication: RHEUMATOID ARTHRITIS
  6. CRESTOR [Concomitant]
     Indication: BLOOD CHOLESTEROL
  7. ATENOLOL [Concomitant]
     Indication: HYPERTENSION
  8. TYLENOL (CAPLET) [Concomitant]
  9. TYLENOL (CAPLET) [Concomitant]
     Indication: PREMEDICATION
  10. BENADRYL [Concomitant]
  11. BENADRYL [Concomitant]
     Indication: PREMEDICATION
  12. TRENTAL [Concomitant]
     Dosage: ^400^

REACTIONS (11)
  - ASTHENIA [None]
  - BUNDLE BRANCH BLOCK LEFT [None]
  - COMA [None]
  - ERYTHEMA [None]
  - INFUSION RELATED REACTION [None]
  - MYOCARDIAL INFARCTION [None]
  - PAIN IN JAW [None]
  - PNEUMONIA [None]
  - RASH [None]
  - TACHYPNOEA [None]
  - URINARY INCONTINENCE [None]
